FAERS Safety Report 19076392 (Version 3)
Quarter: 2023Q2

REPORT INFORMATION
  Report Type: Spontaneous
  Country: US (occurrence: US)
  Receive Date: 20210330
  Receipt Date: 20230518
  Transmission Date: 20230721
  Serious: Yes (Hospitalization, Other)
  Sender: FDA-Public Use
  Company Number: US-GILEAD-2021-0523115

PATIENT
  Age: 60 Year
  Sex: Male
  Weight: 62.132 kg

DRUGS (15)
  1. VIREAD [Suspect]
     Active Substance: TENOFOVIR DISOPROXIL FUMARATE
     Indication: HIV infection
     Dosage: UNK
     Route: 048
     Dates: start: 2005, end: 2010
  2. TRUVADA [Suspect]
     Active Substance: EMTRICITABINE\TENOFOVIR DISOPROXIL FUMARATE
     Indication: HIV infection
     Dosage: UNK
     Route: 048
     Dates: start: 2005, end: 201410
  3. TRUVADA [Suspect]
     Active Substance: EMTRICITABINE\TENOFOVIR DISOPROXIL FUMARATE
     Dosage: UNK
     Route: 065
     Dates: start: 2014, end: 2015
  4. FAMOTIDINE [Concomitant]
     Active Substance: FAMOTIDINE
  5. PRAMIPEXOLE [Concomitant]
     Active Substance: PRAMIPEXOLE
  6. PIFELTRO [Concomitant]
     Active Substance: DORAVIRINE
  7. DOVATO [Concomitant]
     Active Substance: DOLUTEGRAVIR SODIUM\LAMIVUDINE
  8. GABAPENTIN [Concomitant]
     Active Substance: GABAPENTIN
  9. VITAMINS [Concomitant]
     Active Substance: VITAMINS
  10. SENEXON [SENNA SPP.] [Concomitant]
  11. VITAMIN B [Concomitant]
     Active Substance: VITAMIN B
  12. FOSAMAX [Concomitant]
     Active Substance: ALENDRONATE SODIUM
  13. CALCIUM [Concomitant]
     Active Substance: CALCIUM
  14. VITAMIN D NOS [Concomitant]
     Active Substance: VITAMIN D NOS
  15. KALETRA [Concomitant]
     Active Substance: LOPINAVIR\RITONAVIR

REACTIONS (16)
  - Acute kidney injury [Recovered/Resolved]
  - Osteoporosis [Not Recovered/Not Resolved]
  - Chronic kidney disease [Not Recovered/Not Resolved]
  - Renal failure [Not Recovered/Not Resolved]
  - Emotional distress [Not Recovered/Not Resolved]
  - Anhedonia [Not Recovered/Not Resolved]
  - Bone demineralisation [Not Recovered/Not Resolved]
  - Anxiety [Not Recovered/Not Resolved]
  - Pain [Not Recovered/Not Resolved]
  - Pain in extremity [Not Recovered/Not Resolved]
  - Mobility decreased [Not Recovered/Not Resolved]
  - Fatigue [Not Recovered/Not Resolved]
  - Insomnia [Not Recovered/Not Resolved]
  - Decreased appetite [Not Recovered/Not Resolved]
  - Nausea [Not Recovered/Not Resolved]
  - Ankle fracture [Recovered/Resolved]

NARRATIVE: CASE EVENT DATE: 20131001
